FAERS Safety Report 7718239-6 (Version None)
Quarter: 2011Q3

REPORT INFORMATION
  Report Type: 
  Country: None (occurrence: None)
  Receive Date: 20110830
  Receipt Date: 20110822
  Transmission Date: 20111222
  Serious: Yes (Hospitalization, Other)
  Sender: FDA-Public Use
  Company Number: PHHY2009CA35156

PATIENT
  Sex: Male

DRUGS (4)
  1. SANDOSTATIN LAR [Suspect]
     Indication: ACROMEGALY
     Dosage: 20 MG, EVERY 4 WEEKS
     Route: 030
     Dates: start: 20090813
  2. SANDOSTATIN LAR [Suspect]
     Dosage: 20 MG EVERY 4 WEEKS
     Route: 030
     Dates: start: 20110525
  3. SANDOSTATIN LAR [Suspect]
     Dosage: 20 MG, QMO
     Route: 030
  4. CABERGOLINE [Concomitant]
     Dosage: 0.25 MG, TWO TIMES PER WEEK

REACTIONS (20)
  - BRONCHOSPASM [None]
  - RASH GENERALISED [None]
  - PRURITUS [None]
  - URTICARIA [None]
  - PROCTALGIA [None]
  - HEADACHE [None]
  - NASOPHARYNGITIS [None]
  - FAECES DISCOLOURED [None]
  - CHILLS [None]
  - ABDOMINAL DISTENSION [None]
  - INJECTION SITE PAIN [None]
  - CONSTIPATION [None]
  - MENTAL IMPAIRMENT [None]
  - BLISTER [None]
  - BLOOD PRESSURE INCREASED [None]
  - DIARRHOEA [None]
  - NASAL CONGESTION [None]
  - ANORECTAL DISCOMFORT [None]
  - RALES [None]
  - FATIGUE [None]
